FAERS Safety Report 26055556 (Version 1)
Quarter: 2025Q4

REPORT INFORMATION
  Report Type: Spontaneous
  Country: EU (occurrence: EU)
  Receive Date: 20251117
  Receipt Date: 20251117
  Transmission Date: 20260117
  Serious: Yes (Other)
  Sender: JOHNSON AND JOHNSON
  Company Number: EU-CELLTRION INC.-2025DE039110

PATIENT
  Age: 35 Year
  Sex: Female

DRUGS (4)
  1. INFLIXIMAB [Suspect]
     Active Substance: INFLIXIMAB
     Indication: Colitis ulcerative
     Dosage: EVERY 6 WEEKS
  2. INFLIXIMAB [Suspect]
     Active Substance: INFLIXIMAB
     Indication: Colitis ulcerative
     Dosage: PRE-FILLED SYRINGE 120 MG EVERY 2 WEEKS S.C. THIGH
  3. INFLIXIMAB [Suspect]
     Active Substance: INFLIXIMAB
     Dosage: PEN EVERY 2 WEEKS
  4. MESALAMINE [Concomitant]
     Active Substance: MESALAMINE
     Indication: Product used for unknown indication

REACTIONS (3)
  - Maternal exposure during pregnancy [Unknown]
  - Skin reaction [Unknown]
  - Intentional product use issue [Unknown]
